FAERS Safety Report 12458809 (Version 3)
Quarter: 2016Q2

REPORT INFORMATION
  Report Type: Spontaneous
  Country: AT (occurrence: AT)
  Receive Date: 20160613
  Receipt Date: 20160623
  Transmission Date: 20160815
  Serious: Yes (Life-Threatening, Hospitalization)
  Sender: FDA-Public Use
  Company Number: AT-GE HEALTHCARE MEDICAL DIAGNOSTICS-OMPQ-PR-1606S-0942

PATIENT
  Age: 44 Year
  Sex: Female

DRUGS (4)
  1. ACCUPAQUE [Suspect]
     Active Substance: IOHEXOL
     Indication: DIAGNOSTIC PROCEDURE
  2. ACCUPAQUE [Suspect]
     Active Substance: IOHEXOL
     Indication: RENAL DISORDER
  3. ACCUPAQUE [Suspect]
     Active Substance: IOHEXOL
     Indication: URINARY RETENTION
  4. ACCUPAQUE [Suspect]
     Active Substance: IOHEXOL
     Indication: FLANK PAIN
     Route: 042
     Dates: start: 20160530, end: 20160530

REACTIONS (7)
  - Lip oedema [Recovered/Resolved]
  - Tachycardia [Recovered/Resolved]
  - Loss of consciousness [Recovered/Resolved]
  - Blood pressure decreased [Recovered/Resolved]
  - Vomiting [Recovered/Resolved]
  - Nausea [Recovered/Resolved]
  - Shock symptom [Recovered/Resolved]

NARRATIVE: CASE EVENT DATE: 20160530
